FAERS Safety Report 25278078 (Version 1)
Quarter: 2025Q2

REPORT INFORMATION
  Report Type: Spontaneous
  Country: FR (occurrence: FR)
  Receive Date: 20250507
  Receipt Date: 20250507
  Transmission Date: 20250716
  Serious: Yes (Other)
  Sender: OTSUKA
  Company Number: FR-MMM-Otsuka-F8YKAI1R

PATIENT

DRUGS (2)
  1. TOLVAPTAN [Interacting]
     Active Substance: TOLVAPTAN
     Indication: Renal cyst
     Dosage: 80 MG, QD (IN THE MORNING)
     Route: 065
  2. TOLVAPTAN [Interacting]
     Active Substance: TOLVAPTAN
     Dosage: 30 MG, QD (8 HOURS LATER)
     Route: 065

REACTIONS (3)
  - Renal cyst infection [Not Recovered/Not Resolved]
  - Drug interaction [Not Recovered/Not Resolved]
  - Off label use [Not Recovered/Not Resolved]
